FAERS Safety Report 5349263-9 (Version None)
Quarter: 2007Q2

REPORT INFORMATION
  Report Type: 
  Country: None (occurrence: None)
  Receive Date: 20070607
  Receipt Date: 20070530
  Transmission Date: 20071010
  Serious: Yes (Hospitalization)
  Sender: FDA-Public Use
  Company Number: ES-ASTRAZENECA-2007AC01008

PATIENT
  Age: 83 Year
  Sex: Male

DRUGS (5)
  1. NEXIUM [Suspect]
     Route: 048
     Dates: start: 20060526
  2. CARDYL [Suspect]
     Indication: HYPERCHOLESTEROLAEMIA
     Route: 048
     Dates: start: 20060526
  3. BISOPROLOL SUMOL [Suspect]
     Route: 048
     Dates: start: 20060526
  4. ISCOVER [Suspect]
     Route: 048
     Dates: start: 20060526
  5. ENALAPRIL MALEATE [Suspect]
     Indication: MYOCARDIAL ISCHAEMIA
     Route: 048
     Dates: start: 20060526, end: 20061020

REACTIONS (2)
  - HEPATITIS CHOLESTATIC [None]
  - PRURITUS [None]
